FAERS Safety Report 10162828 (Version 1)
Quarter: 2014Q2

REPORT INFORMATION
  Report Type: Spontaneous
  Country: FR (occurrence: FR)
  Receive Date: 20140509
  Receipt Date: 20140509
  Transmission Date: 20141212
  Serious: Yes (Hospitalization)
  Sender: FDA-Public Use
  Company Number: FR-JNJFOC-20140503610

PATIENT
  Age: 51 Year
  Sex: Male

DRUGS (2)
  1. IXPRIM [Suspect]
     Indication: PRODUCT USED FOR UNKNOWN INDICATION
     Route: 048
  2. AVLOCARDYL [Suspect]
     Indication: PRODUCT USED FOR UNKNOWN INDICATION
     Route: 048

REACTIONS (4)
  - Hypothermia [Recovered/Resolved]
  - Bradycardia [Recovering/Resolving]
  - Atrioventricular block first degree [Recovered/Resolved]
  - Toxicity to various agents [Recovered/Resolved]
